FAERS Safety Report 10189673 (Version 1)
Quarter: 2014Q2

REPORT INFORMATION
  Report Type: Spontaneous
  Country: US (occurrence: US)
  Receive Date: 20140522
  Receipt Date: 20140522
  Transmission Date: 20141212
  Serious: Yes (Other)
  Sender: FDA-Public Use
  Company Number: US-SANOFI-AVENTIS-2013SA089396

PATIENT
  Age: 50 Year
  Sex: Male

DRUGS (2)
  1. LANTUS SOLOSTAR [Suspect]
     Indication: DIABETES MELLITUS
     Dosage: THERAPY START DATE:~ 1 - 2 WEEKS AGO AND THERAPY STOP DATE: ~ 1 - 2 WEEKS AGO
     Route: 058
  2. SOLOSTAR [Concomitant]
     Indication: DIABETES MELLITUS

REACTIONS (1)
  - Pharyngeal oedema [Recovered/Resolved]
